FAERS Safety Report 23968130 (Version 1)
Quarter: 2024Q2

REPORT INFORMATION
  Report Type: Spontaneous
  Country: US (occurrence: US)
  Receive Date: 20240612
  Receipt Date: 20240612
  Transmission Date: 20240716
  Serious: No
  Sender: FDA-Public Use
  Company Number: US-SA-SAC20240611001187

PATIENT
  Age: 10 Year
  Sex: Female
  Weight: 23.5 kg

DRUGS (2)
  1. DUPIXENT [Suspect]
     Active Substance: DUPILUMAB
     Indication: Eczema nummular
     Dosage: 300 MG, Q4W
     Route: 058
  2. CLOBETASOL PROPIONATE [Concomitant]
     Active Substance: CLOBETASOL PROPIONATE

REACTIONS (1)
  - Panic attack [Not Recovered/Not Resolved]

NARRATIVE: CASE EVENT DATE: 20240601
